FAERS Safety Report 21737124 (Version 1)
Quarter: 2022Q4

REPORT INFORMATION
  Report Type: Spontaneous
  Country: IN (occurrence: IN)
  Receive Date: 20221216
  Receipt Date: 20221216
  Transmission Date: 20230112
  Serious: Yes (Hospitalization, Other)
  Sender: FDA-Public Use
  Company Number: IN-CADILA HEALTHCARE LIMITED-IN-ZYDUS-085686

PATIENT

DRUGS (8)
  1. METHYLPREDNISOLONE [Suspect]
     Active Substance: METHYLPREDNISOLONE
     Indication: COVID-19
     Dosage: 40 MILLIGRAM, BID
     Route: 065
  2. METHYLPREDNISOLONE [Suspect]
     Active Substance: METHYLPREDNISOLONE
     Dosage: 80 MILLIGRAM
     Route: 065
  3. REMDESIVIR [Concomitant]
     Active Substance: REMDESIVIR
     Indication: Product used for unknown indication
     Dosage: 200 MILLIGRAM IN 100 ML
     Route: 065
  4. REMDESIVIR [Concomitant]
     Active Substance: REMDESIVIR
     Dosage: 100 MILLIGRAM, QD FOR THE NEXT 4 DAYS,
     Route: 065
  5. LENOX [LOXOPROFEN SODIUM DIHYDRATE] [Concomitant]
     Indication: Product used for unknown indication
     Dosage: 0.4 MILLILITER, BID
     Route: 058
  6. INSULIN HUMAN [Concomitant]
     Active Substance: INSULIN HUMAN
     Indication: Product used for unknown indication
     Dosage: UNK
     Route: 065
  7. DEXTROSE [Concomitant]
     Active Substance: DEXTROSE
     Indication: Product used for unknown indication
     Dosage: 5 PERCENT
     Route: 042
  8. LUPENOX [Concomitant]
     Indication: Product used for unknown indication
     Dosage: 0.6 MILLILITER, BID
     Route: 058

REACTIONS (3)
  - Pneumonitis [Unknown]
  - Pulmonary cavitation [Unknown]
  - Off label use [Unknown]
